FAERS Safety Report 17950534 (Version 2)
Quarter: 2020Q3

REPORT INFORMATION
  Report Type: Spontaneous
  Country: AU (occurrence: AU)
  Receive Date: 20200626
  Receipt Date: 20200703
  Transmission Date: 20201103
  Serious: Yes (Hospitalization, Other)
  Sender: FDA-Public Use
  Company Number: AU-MYLANLABS-2020M1057975

PATIENT
  Age: 67 Year
  Sex: Male

DRUGS (2)
  1. OXYCODONE [Suspect]
     Active Substance: OXYCODONE
     Indication: BACK INJURY
     Dosage: UNK
  2. MORPHINE [Suspect]
     Active Substance: MORPHINE
     Indication: BACK INJURY
     Dosage: UNK

REACTIONS (14)
  - Muscle spasms [Unknown]
  - Depressed mood [Unknown]
  - Paraesthesia [Unknown]
  - Withdrawal syndrome [Unknown]
  - Hypoaesthesia [Unknown]
  - Pneumonia [Unknown]
  - Suicide attempt [Unknown]
  - Tremor [Unknown]
  - Feeling abnormal [Unknown]
  - Movement disorder [Unknown]
  - Chills [Unknown]
  - Incoherent [Unknown]
  - Nervousness [Unknown]
  - Pain [Unknown]
